FAERS Safety Report 7989474-7 (Version None)
Quarter: 2011Q4

REPORT INFORMATION
  Report Type: 
  Country: None (occurrence: None)
  Receive Date: 20111219
  Receipt Date: 20111209
  Transmission Date: 20120403
  Serious: Yes (Hospitalization, Other)
  Sender: FDA-Public Use
  Company Number: JP-ASTELLAS-2011US008331

PATIENT
  Weight: 58 kg

DRUGS (10)
  1. LOCOID [Concomitant]
     Indication: DRY SKIN
     Dosage: UNK
     Route: 061
     Dates: start: 20111024
  2. ASTOMIN [Concomitant]
     Indication: COUGH
     Dosage: 30 MG, UID/QD
     Route: 048
     Dates: start: 20110705
  3. MINOCYCLINE HCL [Concomitant]
     Indication: PARONYCHIA
     Dosage: 200 MG, UID/QD
     Route: 048
     Dates: start: 20110829
  4. XYLOCAINE [Concomitant]
     Indication: STOMATITIS
     Dosage: 10 ML, OTHER
     Route: 048
     Dates: start: 20110926
  5. HIRUDOID [Concomitant]
     Indication: DRY SKIN
     Dosage: UNK
     Route: 061
     Dates: start: 20111024
  6. DEXALTIN [Concomitant]
     Indication: STOMATITIS
     Dosage: UNK
     Route: 048
     Dates: start: 20110926
  7. CLOBETASOL PROPIONATE [Concomitant]
     Indication: PARONYCHIA
     Dosage: UNK
     Route: 061
     Dates: start: 20111024
  8. RINDERON-VG [Concomitant]
     Indication: PARONYCHIA
     Dosage: UNK
     Route: 061
     Dates: start: 20110829
  9. OLOPATADINE HCL [Concomitant]
     Indication: DERMATITIS ACNEIFORM
     Dosage: 10 MG, UID/QD
     Route: 048
     Dates: start: 20110702
  10. ERLOTINIB HYDROCHLORIDE [Suspect]
     Indication: NON-SMALL CELL LUNG CANCER
     Dosage: 150 MG, UID/QD
     Route: 048
     Dates: start: 20110629, end: 20111205

REACTIONS (6)
  - FALL [None]
  - PYREXIA [None]
  - PNEUMONIA [None]
  - CONTUSION [None]
  - SPINAL FRACTURE [None]
  - BACK PAIN [None]
